FAERS Safety Report 8394614-4 (Version None)
Quarter: 2012Q2

REPORT INFORMATION
  Report Type: 
  Country: None (occurrence: None)
  Receive Date: 20120525
  Receipt Date: 20120525
  Transmission Date: 20120825
  Serious: Yes (Other)
  Sender: FDA-Public Use
  Company Number: None

PATIENT
  Age: 50 Year
  Sex: Male
  Weight: 84.369 kg

DRUGS (3)
  1. MORPHINE SULFATE [Suspect]
     Indication: CAUDA EQUINA SYNDROME
     Dosage: 114.92 MCG DAY INTRATHECAL
     Route: 037
     Dates: start: 20101031, end: 20120411
  2. MORPHINE SULFATE [Suspect]
     Indication: PAIN
     Dosage: 114.92 MCG DAY INTRATHECAL
     Route: 037
     Dates: start: 20101031, end: 20120411
  3. MORPHINE SULFATE [Concomitant]

REACTIONS (11)
  - CONSTIPATION [None]
  - CONFUSIONAL STATE [None]
  - NAUSEA [None]
  - MEDICAL DEVICE COMPLICATION [None]
  - CONDITION AGGRAVATED [None]
  - HEADACHE [None]
  - MALAISE [None]
  - DIARRHOEA [None]
  - PAIN [None]
  - PRODUCT QUALITY ISSUE [None]
  - WITHDRAWAL SYNDROME [None]
